FAERS Safety Report 5702469-9 (Version None)
Quarter: 2008Q2

REPORT INFORMATION
  Report Type: 
  Country: None (occurrence: None)
  Receive Date: 20080411
  Receipt Date: 20080408
  Transmission Date: 20081010
  Serious: Yes (Hospitalization)
  Sender: FDA-Public Use
  Company Number: FR-JNJFOC-20080401834

PATIENT
  Sex: Female

DRUGS (6)
  1. HALDOL [Suspect]
     Indication: DRUG USE FOR UNKNOWN INDICATION
     Route: 030
  2. RISPERDAL [Suspect]
     Indication: DRUG USE FOR UNKNOWN INDICATION
     Route: 048
  3. LEPTICUR [Concomitant]
  4. XANAX [Concomitant]
  5. SPECIAFOLDINE [Concomitant]
  6. VITAMIN B COMPLEX CAP [Concomitant]

REACTIONS (1)
  - HYPONATRAEMIA [None]
